FAERS Safety Report 5728143-0 (Version None)
Quarter: 2008Q2

REPORT INFORMATION
  Report Type: 
  Country: None (occurrence: None)
  Receive Date: 20080505
  Receipt Date: 20080429
  Transmission Date: 20081010
  Serious: Yes (Hospitalization)
  Sender: FDA-Public Use
  Company Number: US-MERCK-0804USA06469

PATIENT
  Age: 52 Year
  Sex: Female

DRUGS (2)
  1. JANUVIA [Suspect]
     Indication: TYPE 2 DIABETES MELLITUS
     Route: 048
     Dates: start: 20051001
  2. [THERAPY UNSPECIFIED] [Concomitant]
     Route: 065

REACTIONS (3)
  - HYPOAESTHESIA [None]
  - OEDEMA PERIPHERAL [None]
  - PARAESTHESIA [None]
